FAERS Safety Report 4955878-X (Version None)
Quarter: 2006Q1

REPORT INFORMATION
  Report Type: 
  Country: None (occurrence: None)
  Receive Date: 20060327
  Receipt Date: 20060327
  Transmission Date: 20060701
  Serious: Yes (Other)
  Sender: FDA-Public Use
  Company Number: None

PATIENT
  Sex: Female

DRUGS (4)
  1. NEVANAC [Suspect]
     Indication: PAIN MANAGEMENT
     Dosage: GTT ONE QID DROP
     Dates: start: 20051209, end: 20051211
  2. ZYMER [Concomitant]
  3. ACULAR PRESERVATIVE FREE [Concomitant]
  4. PRED FORTE [Concomitant]

REACTIONS (3)
  - CORNEAL EPITHELIUM DISORDER [None]
  - CORNEAL OPACITY [None]
  - EYE OPERATION COMPLICATION [None]
